FAERS Safety Report 14100831 (Version 1)
Quarter: 2017Q4

REPORT INFORMATION
  Report Type: Spontaneous
  Country: US (occurrence: None)
  Receive Date: 20171017
  Receipt Date: 20171017
  Transmission Date: 20180321
  Serious: Yes (Other)
  Sender: FDA-Public Use
  Company Number: None

PATIENT
  Age: 67 Year
  Sex: Male
  Weight: 79.38 kg

DRUGS (1)
  1. PRAMAPEXOLE, 1MG TABLETS [Suspect]
     Active Substance: PRAMIPEXOLE
     Indication: PARKINSON^S DISEASE

REACTIONS (3)
  - Vomiting [None]
  - Overdose [None]
  - Nausea [None]

NARRATIVE: CASE EVENT DATE: 20171003
